FAERS Safety Report 17743435 (Version 1)
Quarter: 2020Q2

REPORT INFORMATION
  Report Type: Spontaneous
  Country: US (occurrence: US)
  Receive Date: 20200505
  Receipt Date: 20200505
  Transmission Date: 20200714
  Serious: No
  Sender: FDA-Public Use
  Company Number: US-ROCHE-2407515

PATIENT
  Sex: Male

DRUGS (3)
  1. ESBRIET [Suspect]
     Active Substance: PIRFENIDONE
     Route: 048
  2. ESBRIET [Suspect]
     Active Substance: PIRFENIDONE
     Indication: IDIOPATHIC PULMONARY FIBROSIS
     Route: 048
     Dates: start: 20190812, end: 20190904
  3. ESBRIET [Suspect]
     Active Substance: PIRFENIDONE
     Dosage: THREE DAILY
     Route: 048
     Dates: start: 20190908

REACTIONS (2)
  - Regurgitation [Unknown]
  - Nausea [Unknown]
